FAERS Safety Report 4497120-2 (Version None)
Quarter: 2004Q4

REPORT INFORMATION
  Report Type: 
  Country: None (occurrence: None)
  Receive Date: 20041110
  Receipt Date: 20040527
  Transmission Date: 20050328
  Serious: Yes (Hospitalization)
  Sender: FDA-Public Use
  Company Number: US-BRISTOL-MYERS SQUIBB COMPANY-12599312

PATIENT
  Age: 61 Year
  Sex: Male

DRUGS (5)
  1. TEQUIN [Suspect]
     Indication: PROSTATITIS
     Dosage: ONCE DAILY
     Route: 048
     Dates: start: 20030416
  2. GLUCOPHAGE [Concomitant]
     Route: 048
  3. LIPITOR [Concomitant]
     Dosage: ONCE DAILY
     Route: 048
  4. PERCOCET [Concomitant]
     Dosage: 1-2 TABLETS 4-6 TIMES PER DAY
     Route: 048
  5. GLUCOTROL XL [Concomitant]
     Route: 048

REACTIONS (7)
  - AGGRESSION [None]
  - CONFUSIONAL STATE [None]
  - CONVULSION [None]
  - DEMENTIA [None]
  - DIZZINESS [None]
  - HYPOGLYCAEMIA [None]
  - MALAISE [None]
